FAERS Safety Report 7634096-0 (Version None)
Quarter: 2011Q3

REPORT INFORMATION
  Report Type: 
  Country: None (occurrence: None)
  Receive Date: 20110725
  Receipt Date: 20110720
  Transmission Date: 20111222
  Serious: Yes (Death)
  Sender: FDA-Public Use
  Company Number: US-AMGEN-USASP2010009254

PATIENT
  Sex: Female
  Weight: 72.109 kg

DRUGS (7)
  1. VITAMIN B6 [Concomitant]
     Dosage: 400 MG, BID
     Dates: start: 20100824
  2. NPLATE [Suspect]
     Indication: IDIOPATHIC THROMBOCYTOPENIC PURPURA
     Dosage: 750 A?G, UNK
     Dates: start: 20091027, end: 20100819
  3. XELODA [Concomitant]
     Dosage: 2000 MG, BID
     Dates: start: 20100824
  4. ALOXI [Concomitant]
  5. PREDNISONE [Concomitant]
  6. GEMZAR [Concomitant]
     Dosage: UNK
     Dates: start: 20100624, end: 20100803
  7. DECADRON [Concomitant]

REACTIONS (1)
  - BILE DUCT CANCER [None]
